FAERS Safety Report 4326404-3 (Version None)
Quarter: 2004Q1

REPORT INFORMATION
  Report Type: 
  Country: None (occurrence: None)
  Receive Date: 20040325
  Receipt Date: 20031001
  Transmission Date: 20041129
  Serious: No
  Sender: FDA-Public Use
  Company Number: US049837

PATIENT
  Age: 55 Year
  Sex: Female
  Weight: 62.2 kg

DRUGS (14)
  1. NEULASTA [Suspect]
     Indication: CHEMOTHERAPY
     Dosage: 6 MG, 1 IN 1 WEEKS, SC
     Route: 058
     Dates: start: 20030620, end: 20030804
  2. DOXORUBICIN HYDROCHLORIDE [Concomitant]
  3. CYCLOPHOSPHAMIDE [Concomitant]
  4. SUMATRIPTAN SUCCINATE [Concomitant]
  5. ESCITALOPRAM [Concomitant]
  6. FEXOFENADINE HYDROCHLORIDE [Concomitant]
  7. FLUTICASONE PROPIONATE [Concomitant]
  8. WARFARIN SODIUM [Concomitant]
  9. GRANISETRON HCL [Concomitant]
  10. PROCHLORPERAZINE EDISYLATE [Concomitant]
  11. LIDOCAINE [Concomitant]
  12. TRAZODONE HCL [Concomitant]
  13. NEUPOGEN [Concomitant]
  14. ONDANSETRON HCL [Concomitant]

REACTIONS (1)
  - WHITE BLOOD CELL COUNT INCREASED [None]
